FAERS Safety Report 8771195 (Version 1)
Quarter: 2012Q4

REPORT INFORMATION
  Report Type: 
  Country: US (occurrence: US)
  Receive Date: 20120906
  Receipt Date: 20120906
  Transmission Date: 20130627
  Serious: Yes (Hospitalization)
  Sender: FDA-Public Use
  Company Number: US-PFIZER INC-2012218562

PATIENT
  Age: 53 Year
  Sex: Female

DRUGS (3)
  1. PAROXETINE [Suspect]
     Indication: PRODUCT USED FOR UNKNOWN INDICATION
     Dosage: 20 mg, daily
     Route: 065
  2. HYDROXYZINE PAMOATE [Interacting]
     Indication: URTICARIA
     Dosage: 25mg every 6 hours as needed
     Route: 065
  3. HYDROCODONE [Interacting]
     Indication: PRODUCT USED FOR UNKNOWN INDICATION
     Dosage: 5 mg, 4x/day
     Route: 065

REACTIONS (8)
  - Drug interaction [Unknown]
  - Mental status changes [Unknown]
  - Confusional state [Recovered/Resolved]
  - Somnolence [Recovered/Resolved]
  - Muscular weakness [Unknown]
  - Asthenia [Unknown]
  - Dysstasia [Unknown]
  - Dizziness [Recovered/Resolved]
